FAERS Safety Report 17240373 (Version 3)
Quarter: 2020Q1

REPORT INFORMATION
  Report Type: Report from Study
  Country: CA (occurrence: CA)
  Receive Date: 20200107
  Receipt Date: 20200207
  Transmission Date: 20200409
  Serious: Yes (Hospitalization, Other)
  Sender: FDA-Public Use
  Company Number: CA-ROCHE-2282467

PATIENT
  Age: 90 Year
  Sex: Male

DRUGS (30)
  1. ESBRIET [Suspect]
     Active Substance: PIRFENIDONE
     Route: 048
  2. ZANTAC [Concomitant]
     Active Substance: RANITIDINE HYDROCHLORIDE
     Route: 065
  3. ESBRIET [Suspect]
     Active Substance: PIRFENIDONE
     Indication: IDIOPATHIC PULMONARY FIBROSIS
     Route: 048
     Dates: start: 20180922, end: 20180928
  4. ESBRIET [Suspect]
     Active Substance: PIRFENIDONE
     Route: 048
     Dates: start: 201903, end: 20190820
  5. ESBRIET [Suspect]
     Active Substance: PIRFENIDONE
     Route: 048
     Dates: start: 2019, end: 20190912
  6. ESBRIET [Suspect]
     Active Substance: PIRFENIDONE
     Route: 048
     Dates: start: 20191117
  7. ESBRIET [Suspect]
     Active Substance: PIRFENIDONE
     Route: 048
     Dates: start: 2019, end: 201908
  8. ESBRIET [Suspect]
     Active Substance: PIRFENIDONE
     Dosage: SLOWLY INCREASE BY 1 CAPSULE TO REACH 2403 MG DAILY
     Route: 048
     Dates: start: 20190821, end: 20190829
  9. ESBRIET [Suspect]
     Active Substance: PIRFENIDONE
     Dosage: 8 CAPSULES
     Route: 048
     Dates: end: 2019
  10. ESBRIET [Suspect]
     Active Substance: PIRFENIDONE
     Route: 048
     Dates: start: 2019, end: 2019
  11. ESBRIET [Suspect]
     Active Substance: PIRFENIDONE
     Route: 048
     Dates: start: 20190308, end: 20190820
  12. ZOLADEX [Concomitant]
     Active Substance: GOSERELIN ACETATE
     Route: 065
  13. ESBRIET [Suspect]
     Active Substance: PIRFENIDONE
     Route: 048
     Dates: start: 2018
  14. ESBRIET [Suspect]
     Active Substance: PIRFENIDONE
     Dosage: ON HOLD
     Route: 048
     Dates: start: 2019
  15. ESBRIET [Suspect]
     Active Substance: PIRFENIDONE
     Dosage: TOOK ONLY 1 CAPSULE
     Route: 048
     Dates: end: 20190925
  16. ESBRIET [Suspect]
     Active Substance: PIRFENIDONE
     Dosage: TO BE CONFIRMED AND WILL INCREASE BY 1 CAPSULE EVERY WEEK
     Route: 048
     Dates: start: 20191001, end: 201910
  17. ATROVENT [Concomitant]
     Active Substance: IPRATROPIUM BROMIDE
  18. IRON FERROUS GLUCONATE [Concomitant]
     Active Substance: FERROUS GLUCONATE
  19. ESBRIET [Suspect]
     Active Substance: PIRFENIDONE
     Route: 048
     Dates: start: 20190830, end: 20190912
  20. ESBRIET [Suspect]
     Active Substance: PIRFENIDONE
     Route: 048
     Dates: start: 201911, end: 20191116
  21. METOPROLOL. [Concomitant]
     Active Substance: METOPROLOL
     Route: 065
  22. SALBUTAMOL [Concomitant]
     Active Substance: ALBUTEROL
  23. VITAMIN D [ERGOCALCIFEROL] [Concomitant]
     Active Substance: ERGOCALCIFEROL
     Indication: PRODUCT USED FOR UNKNOWN INDICATION
  24. PANTOPRAZOLE [Concomitant]
     Active Substance: PANTOPRAZOLE
     Route: 065
     Dates: start: 2019
  25. ESBRIET [Suspect]
     Active Substance: PIRFENIDONE
     Route: 048
     Dates: start: 20180929, end: 20181005
  26. ESBRIET [Suspect]
     Active Substance: PIRFENIDONE
     Route: 048
     Dates: end: 201910
  27. ACETYLSALICYLIC ACID [Concomitant]
     Active Substance: ASPIRIN
     Route: 065
  28. RESTORALAX [Concomitant]
     Active Substance: POLYETHYLENE GLYCOL 3350
     Indication: CONSTIPATION
     Route: 065
     Dates: start: 201911, end: 201911
  29. ESBRIET [Suspect]
     Active Substance: PIRFENIDONE
     Route: 048
     Dates: start: 20181006, end: 201903
  30. ESBRIET [Suspect]
     Active Substance: PIRFENIDONE
     Route: 048
     Dates: start: 2019

REACTIONS (3)
  - Flatulence [Recovering/Resolving]
  - Diarrhoea [Unknown]
  - Gastric disorder [Unknown]

NARRATIVE: CASE EVENT DATE: 201902
